FAERS Safety Report 7063061-X (Version None)
Quarter: 2010Q4

REPORT INFORMATION
  Report Type: 
  Country: None (occurrence: None)
  Receive Date: 20101026
  Receipt Date: 20100429
  Transmission Date: 20110411
  Serious: Yes (Other)
  Sender: FDA-Public Use
  Company Number: US-PFIZER INC-2010045106

PATIENT
  Sex: Female
  Weight: 73 kg

DRUGS (2)
  1. LIPITOR [Suspect]
     Indication: CATHETERISATION CARDIAC
     Dosage: 40 MG, 1X/DAY HS
     Route: 048
     Dates: start: 20100301, end: 20100101
  2. LISINOPRIL [Suspect]

REACTIONS (6)
  - ARTHRALGIA [None]
  - COUGH [None]
  - HYPERSENSITIVITY [None]
  - INFLUENZA LIKE ILLNESS [None]
  - MYALGIA [None]
  - PAIN IN EXTREMITY [None]
